FAERS Safety Report 18589379 (Version 1)
Quarter: 2020Q4

REPORT INFORMATION
  Report Type: Other
  Country: NL (occurrence: NL)
  Receive Date: 20201208
  Receipt Date: 20201208
  Transmission Date: 20210114
  Serious: Yes (Other)
  Sender: FDA-Public Use
  Company Number: NL-APOTEX-2020AP023461

PATIENT
  Sex: Female

DRUGS (1)
  1. PAROXETINE TABLET [Suspect]
     Active Substance: PAROXETINE
     Indication: PANIC DISORDER
     Dosage: 20 MG, QD, (1 X PER DAY 1 PIECE)
     Route: 065
     Dates: start: 2004

REACTIONS (2)
  - Memory impairment [Not Recovered/Not Resolved]
  - Mental impairment [Not Recovered/Not Resolved]
